FAERS Safety Report 5906203-9 (Version None)
Quarter: 2008Q4

REPORT INFORMATION
  Report Type: 
  Country: None (occurrence: None)
  Receive Date: 20081002
  Receipt Date: 20080922
  Transmission Date: 20090506
  Serious: Yes (Disabling)
  Sender: FDA-Public Use
  Company Number: DK-PFIZER INC-2005161761

PATIENT
  Sex: Female
  Weight: 95 kg

DRUGS (3)
  1. ZELDOX (CAPSULES) [Suspect]
     Indication: PSYCHOTIC DISORDER
     Route: 048
     Dates: start: 20041103, end: 20050601
  2. ESCITALOPRAM [Concomitant]
     Route: 048
     Dates: start: 20040727
  3. OXAZEPAM [Concomitant]
     Route: 065
     Dates: start: 20040805

REACTIONS (9)
  - DROOLING [None]
  - DYSPHAGIA [None]
  - FACIAL PAIN [None]
  - GRIMACING [None]
  - HYPERTONIA [None]
  - MUSCULOSKELETAL STIFFNESS [None]
  - PARAESTHESIA [None]
  - SPEECH DISORDER [None]
  - TIC [None]
